FAERS Safety Report 6165295-5 (Version None)
Quarter: 2009Q2

REPORT INFORMATION
  Report Type: 
  Country: None (occurrence: None)
  Receive Date: 20090423
  Receipt Date: 20090420
  Transmission Date: 20091009
  Serious: Yes (Hospitalization)
  Sender: FDA-Public Use
  Company Number: US-ASTRAZENECA-2009UW09821

PATIENT
  Age: 70 Year
  Sex: Female

DRUGS (5)
  1. PULMICORT-100 [Suspect]
     Indication: CHRONIC OBSTRUCTIVE PULMONARY DISEASE
     Dosage: 0.5 MG  BID
     Route: 055
     Dates: start: 20071201
  2. XOPENEX [Concomitant]
  3. DIGOXIN [Concomitant]
  4. IPRATROPIUM BROMIDE [Concomitant]
  5. ATENOLOL [Concomitant]

REACTIONS (4)
  - BRONCHOSPASM [None]
  - CHRONIC OBSTRUCTIVE PULMONARY DISEASE [None]
  - MALAISE [None]
  - RESPIRATORY TRACT INFECTION [None]
